FAERS Safety Report 10263405 (Version 2)
Quarter: 2014Q4

REPORT INFORMATION
  Report Type: Spontaneous
  Country: US (occurrence: US)
  Receive Date: 20140626
  Receipt Date: 20141105
  Transmission Date: 20150528
  Serious: No
  Sender: FDA-Public Use
  Company Number: US-GILEAD-2014-0106745

PATIENT
  Age: 61 Year
  Sex: Male

DRUGS (23)
  1. SINEMET [Concomitant]
     Active Substance: CARBIDOPA\LEVODOPA
  2. PROAIR HFA [Concomitant]
     Active Substance: ALBUTEROL SULFATE
  3. PROTONIX [Concomitant]
     Active Substance: PANTOPRAZOLE SODIUM
  4. TRAMADOL [Concomitant]
     Active Substance: TRAMADOL
  5. ATORVASTATIN [Concomitant]
     Active Substance: ATORVASTATIN
  6. KETOCONAZOLE. [Concomitant]
     Active Substance: KETOCONAZOLE
  7. NASONEX [Concomitant]
     Active Substance: MOMETASONE FUROATE
  8. LETAIRIS [Suspect]
     Active Substance: AMBRISENTAN
     Indication: PULMONARY HYPERTENSION
     Dosage: 10 MG, QD
     Route: 065
     Dates: start: 20130710
  9. LETAIRIS [Suspect]
     Active Substance: AMBRISENTAN
     Indication: SLEEP APNOEA SYNDROME
  10. LETAIRIS [Suspect]
     Active Substance: AMBRISENTAN
     Indication: SLEEP APNOEA SYNDROME
  11. ELOCON [Concomitant]
     Active Substance: MOMETASONE FUROATE
  12. KLOR-CON [Concomitant]
     Active Substance: POTASSIUM CHLORIDE
  13. ACETAMINOPHEN AND CODEINE [Concomitant]
     Active Substance: ACETAMINOPHEN\CODEINE PHOSPHATE
  14. BUDESONIDE. [Concomitant]
     Active Substance: BUDESONIDE
  15. PREDNISONE. [Concomitant]
     Active Substance: PREDNISONE
  16. ASMANEX [Concomitant]
     Active Substance: MOMETASONE FUROATE
  17. COLCRYS [Concomitant]
     Active Substance: COLCHICINE
  18. REQUIP [Concomitant]
     Active Substance: ROPINIROLE HYDROCHLORIDE
  19. COUMADIN [Concomitant]
     Active Substance: WARFARIN SODIUM
  20. LASIX [Concomitant]
     Active Substance: FUROSEMIDE
  21. METOPROLOL [Concomitant]
     Active Substance: METOPROLOL
  22. ASPIRIN. [Concomitant]
     Active Substance: ASPIRIN
  23. DUONEB [Concomitant]
     Active Substance: ALBUTEROL SULFATE\IPRATROPIUM BROMIDE

REACTIONS (1)
  - Cough [Not Recovered/Not Resolved]

NARRATIVE: CASE EVENT DATE: 20140522
